FAERS Safety Report 8736414 (Version 2)
Quarter: 2012Q4

REPORT INFORMATION
  Report Type: 
  Country: US (occurrence: US)
  Receive Date: 20120822
  Receipt Date: 20121016
  Transmission Date: 20130627
  Serious: Yes (Hospitalization)
  Sender: FDA-Public Use
  Company Number: US-CELGENEUS-163-21880-12082069

PATIENT
  Age: 84 None
  Sex: Female

DRUGS (5)
  1. REVLIMID [Suspect]
     Indication: MDS
     Dosage: 5 Milligram
     Route: 048
     Dates: start: 20070219, end: 20120926
  2. SYNTHROID [Concomitant]
     Indication: HYPOTHYROIDISM
     Dosage: 50 Microgram
     Route: 048
  3. AMBIEN [Concomitant]
     Indication: DRUG USE FOR UNKNOWN INDICATION
     Dosage: 5 Milligram
     Route: 065
  4. TRAMADOL [Concomitant]
     Indication: BACK PAIN
     Dosage: 100 Milligram
     Route: 065
  5. EXJADE [Concomitant]
     Indication: DRUG USE FOR UNKNOWN INDICATION
     Route: 065
     Dates: start: 200702, end: 201006

REACTIONS (1)
  - Invasive ductal breast carcinoma [Recovered/Resolved]
